FAERS Safety Report 5329902-9 (Version None)
Quarter: 2007Q2

REPORT INFORMATION
  Report Type: 
  Country: None (occurrence: None)
  Receive Date: 20070517
  Receipt Date: 20070517
  Transmission Date: 20071010
  Serious: Yes (Hospitalization)
  Sender: FDA-Public Use
  Company Number: None

PATIENT
  Age: 24 Year
  Sex: Female
  Weight: 53.1 kg

DRUGS (3)
  1. ISONIAZID [Suspect]
     Dosage: 30MG QDBY MOUTH
     Route: 048
     Dates: start: 20070406, end: 20070409
  2. CLONIDINE HCL (CATAPRES) [Concomitant]
  3. NEPHROCAPS [Concomitant]

REACTIONS (2)
  - HEPATITIS [None]
  - NAUSEA [None]
